FAERS Safety Report 9312524 (Version 2)
Quarter: 2013Q4

REPORT INFORMATION
  Report Type: Spontaneous
  Country: GB (occurrence: None)
  Receive Date: 20130520
  Receipt Date: 20131108
  Transmission Date: 20140711
  Serious: Yes (Disabling, Other)
  Sender: FDA-Public Use
  Company Number: AUR-APL-2013-03920

PATIENT
  Age: 45 Year
  Sex: Female

DRUGS (2)
  1. LAMOTRIGINE (LAMOTRIGINE) [Suspect]
     Indication: EPILEPSY
     Route: 048
  2. EPILIM CHRONO (ERGENYL CHRONO) [Concomitant]

REACTIONS (4)
  - Drug reaction with eosinophilia and systemic symptoms [None]
  - Swelling face [None]
  - Flushing [None]
  - Erythema [None]
